FAERS Safety Report 17371283 (Version 1)
Quarter: 2020Q1

REPORT INFORMATION
  Report Type: Spontaneous
  Country: EG (occurrence: EG)
  Receive Date: 20200205
  Receipt Date: 20200205
  Transmission Date: 20200409
  Serious: Yes (Hospitalization, Other)
  Sender: FDA-Public Use
  Company Number: EG-ACCORD-171613

PATIENT
  Age: 27 Year
  Sex: Male

DRUGS (5)
  1. OMEPRAZOLE. [Interacting]
     Active Substance: OMEPRAZOLE
     Indication: PRODUCT USED FOR UNKNOWN INDICATION
  2. ACETYLSALICYLIC ACID [Interacting]
     Active Substance: ASPIRIN
     Indication: PRODUCT USED FOR UNKNOWN INDICATION
  3. FUROSEMIDE. [Suspect]
     Active Substance: FUROSEMIDE
     Indication: CARDIAC FAILURE
  4. DIGOXIN. [Interacting]
     Active Substance: DIGOXIN
     Indication: CARDIAC FAILURE
  5. WARFARIN [Interacting]
     Active Substance: WARFARIN
     Indication: ANTICOAGULANT THERAPY

REACTIONS (3)
  - International normalised ratio increased [Recovered/Resolved]
  - Hypersensitivity vasculitis [Recovering/Resolving]
  - Drug interaction [Unknown]
